FAERS Safety Report 18417334 (Version 1)
Quarter: 2020Q4

REPORT INFORMATION
  Report Type: Spontaneous
  Country: US (occurrence: US)
  Receive Date: 20201022
  Receipt Date: 20201022
  Transmission Date: 20210114
  Serious: No
  Sender: FDA-Public Use
  Company Number: 2020SGN02666

PATIENT
  Sex: Female

DRUGS (3)
  1. TUKYSA [Suspect]
     Active Substance: TUCATINIB
     Indication: BREAST CANCER FEMALE
     Dosage: UNK UNK, BID
  2. XELODA [Suspect]
     Active Substance: CAPECITABINE
     Indication: BREAST CANCER FEMALE
  3. HERCEPTIN [Concomitant]
     Active Substance: TRASTUZUMAB

REACTIONS (10)
  - Unevaluable event [Unknown]
  - Throat clearing [Unknown]
  - Nail disorder [Unknown]
  - Diarrhoea [Unknown]
  - Product dose omission issue [Unknown]
  - Hypersensitivity [Unknown]
  - Skin discolouration [Unknown]
  - Stomatitis [Unknown]
  - Dry skin [Unknown]
  - Respiration abnormal [Unknown]
